FAERS Safety Report 6999354-1 (Version None)
Quarter: 2010Q3

REPORT INFORMATION
  Report Type: 
  Country: None (occurrence: None)
  Receive Date: 20100920
  Receipt Date: 20100315
  Transmission Date: 20110219
  Serious: No
  Sender: FDA-Public Use
  Company Number: US-ASTRAZENECA-2010SE11109

PATIENT
  Age: 84 Year
  Sex: Male

DRUGS (6)
  1. SEROQUEL XR [Suspect]
     Indication: INSOMNIA
     Route: 048
     Dates: start: 20090901
  2. METFORMIN [Concomitant]
  3. GLYPIZIDE [Concomitant]
  4. LISINOPRIL [Concomitant]
  5. ARACEPT [Concomitant]
  6. ASPIRIN [Concomitant]

REACTIONS (3)
  - CHOKING [None]
  - DIABETES MELLITUS INADEQUATE CONTROL [None]
  - WEIGHT INCREASED [None]
